FAERS Safety Report 11630432 (Version 21)
Quarter: 2020Q1

REPORT INFORMATION
  Report Type: Report from Study
  Country: EC (occurrence: EC)
  Receive Date: 20151014
  Receipt Date: 20200127
  Transmission Date: 20200409
  Serious: Yes (Death, Hospitalization, Other)
  Sender: FDA-Public Use
  Company Number: PHHY2015EC072259

PATIENT
  Age: 52 Year
  Sex: Female
  Weight: 56 kg

DRUGS (11)
  1. TASIGNA [Suspect]
     Active Substance: NILOTINIB
     Dosage: 200 MG, BID
     Route: 048
     Dates: start: 20160808, end: 20170330
  2. TASIGNA [Suspect]
     Active Substance: NILOTINIB
     Indication: CHRONIC MYELOID LEUKAEMIA
     Dosage: 400 MG, BID
     Route: 048
     Dates: start: 20150610, end: 20150715
  3. TASIGNA [Suspect]
     Active Substance: NILOTINIB
     Dosage: 400 MG, BID (2 CAPSULES OF 200 MG) (CAPSULES AT 7 AM BEFORE BREAKFAST AND 2 CAPSULES AT 7 PM)
     Route: 048
     Dates: start: 20181113, end: 20190716
  4. TASIGNA [Suspect]
     Active Substance: NILOTINIB
     Dosage: 200 MG, BID
     Route: 048
     Dates: start: 20190807
  5. TASIGNA [Suspect]
     Active Substance: NILOTINIB
     Dosage: 200 MG, BID
     Route: 048
     Dates: start: 20150716, end: 20151004
  6. TASIGNA [Suspect]
     Active Substance: NILOTINIB
     Dosage: 400 MG, BID
     Route: 048
     Dates: start: 20151230, end: 20160807
  7. TASIGNA [Suspect]
     Active Substance: NILOTINIB
     Dosage: 200 MG, QD
     Route: 048
     Dates: start: 20190717, end: 20190806
  8. TASIGNA [Suspect]
     Active Substance: NILOTINIB
     Dosage: 200 MG, TID
     Route: 048
     Dates: start: 20151005, end: 20151101
  9. COLLAGEN [Concomitant]
     Active Substance: COLLAGEN
     Indication: BONE PAIN
     Dosage: SPOONFUL OF POWDER DISSOLVED IN JUICE, QD (EVERY MORNING)
     Route: 065
  10. TASIGNA [Suspect]
     Active Substance: NILOTINIB
     Dosage: 600 MG, (200 MG IN THE MORNING AND 400 MG AT NIGHT)
     Route: 048
     Dates: start: 20170620, end: 20181112
  11. TASIGNA [Suspect]
     Active Substance: NILOTINIB
     Dosage: 200 MG, QD
     Route: 048
     Dates: start: 20170425, end: 20170619

REACTIONS (61)
  - Malignant neoplasm progression [Fatal]
  - Haemoglobin decreased [Fatal]
  - Eating disorder [Fatal]
  - Asthenia [Recovering/Resolving]
  - Hydronephrosis [Recovering/Resolving]
  - Vomiting [Recovered/Resolved]
  - Pyrexia [Recovered/Resolved]
  - Asphyxia [Recovered/Resolved]
  - Dyspnoea [Fatal]
  - Cardiac disorder [Fatal]
  - Bacterial infection [Recovering/Resolving]
  - Fatigue [Not Recovered/Not Resolved]
  - Dehydration [Recovering/Resolving]
  - Abdominal pain upper [Recovered/Resolved]
  - White blood cell count increased [Recovered/Resolved]
  - Chest pain [Unknown]
  - Swelling face [Recovered/Resolved]
  - Platelet count decreased [Fatal]
  - Blood pressure decreased [Fatal]
  - Asphyxia [Recovering/Resolving]
  - Pyrexia [Recovered/Resolved]
  - Deafness unilateral [Recovering/Resolving]
  - Swelling [Recovered/Resolved]
  - Pulmonary mass [Fatal]
  - Abdominal pain upper [Recovered/Resolved]
  - Diarrhoea [Recovered/Resolved]
  - Splenomegaly [Recovered/Resolved]
  - Memory impairment [Unknown]
  - Agitation [Recovering/Resolving]
  - Infection [Unknown]
  - Arthralgia [Recovered/Resolved]
  - Dehydration [Recovered/Resolved]
  - Diarrhoea [Fatal]
  - Lung disorder [Fatal]
  - Heart rate increased [Recovering/Resolving]
  - Hepatomegaly [Recovering/Resolving]
  - Vaginal ulceration [Recovering/Resolving]
  - Somnolence [Unknown]
  - Peripheral swelling [Recovering/Resolving]
  - Constipation [Not Recovered/Not Resolved]
  - Haemorrhoids [Recovering/Resolving]
  - Inappropriate schedule of product administration [Unknown]
  - Abdominal discomfort [Fatal]
  - Gait disturbance [Fatal]
  - Respiratory failure [Fatal]
  - Arthralgia [Recovered/Resolved]
  - Chills [Recovered/Resolved]
  - Pyrexia [Recovered/Resolved]
  - Splenomegaly [Fatal]
  - Thrombosis [Fatal]
  - Atelectasis [Unknown]
  - Toxicity to various agents [Unknown]
  - Abdominal pain upper [Recovered/Resolved]
  - Ulcer [Recovered/Resolved with Sequelae]
  - Chronic myeloid leukaemia [Fatal]
  - Swelling [Fatal]
  - Cardiomegaly [Recovered/Resolved]
  - Dizziness [Recovering/Resolving]
  - Syncope [Recovered/Resolved]
  - Vaginal discharge [Recovered/Resolved]
  - Abdominal distension [Not Recovered/Not Resolved]

NARRATIVE: CASE EVENT DATE: 20150610
